FAERS Safety Report 17130721 (Version 2)
Quarter: 2019Q4

REPORT INFORMATION
  Report Type: Spontaneous
  Country: AR (occurrence: AR)
  Receive Date: 20191209
  Receipt Date: 20191223
  Transmission Date: 20200122
  Serious: Yes (Other)
  Sender: FDA-Public Use
  Company Number: AR-PFIZER INC-2019482233

PATIENT
  Age: 81 Year
  Sex: Female

DRUGS (1)
  1. XELJANZ [Suspect]
     Active Substance: TOFACITINIB CITRATE
     Indication: RHEUMATOID ARTHRITIS
     Dosage: 5 MG, 2X/DAY
     Dates: start: 20131226

REACTIONS (15)
  - Pemphigus [Unknown]
  - Decreased immune responsiveness [Recovering/Resolving]
  - Cardiomegaly [Not Recovered/Not Resolved]
  - Bone disorder [Unknown]
  - Urticaria [Not Recovered/Not Resolved]
  - Fall [Not Recovered/Not Resolved]
  - Rash [Unknown]
  - Pruritus [Not Recovered/Not Resolved]
  - Measles [Not Recovered/Not Resolved]
  - Nervousness [Not Recovered/Not Resolved]
  - Herpes zoster [Recovering/Resolving]
  - Pain [Recovering/Resolving]
  - Blood electrolytes increased [Unknown]
  - Blood test abnormal [Unknown]
  - Hypersensitivity [Not Recovered/Not Resolved]

NARRATIVE: CASE EVENT DATE: 2016
